FAERS Safety Report 13784428 (Version 2)
Quarter: 2018Q1

REPORT INFORMATION
  Report Type: Spontaneous
  Country: US (occurrence: US)
  Receive Date: 20170724
  Receipt Date: 20180123
  Transmission Date: 20180508
  Serious: No
  Sender: FDA-Public Use
  Company Number: US-IMPAX LABORATORIES, INC-2017-IPXL-01028

PATIENT
  Age: 81 Year
  Sex: Female
  Weight: 68 kg

DRUGS (3)
  1. RYTARY [Suspect]
     Active Substance: CARBIDOPA\LEVODOPA
     Indication: PARKINSON^S DISEASE
     Dosage: 23.75/95 MG, ONE CAPSULE THREE TIMES DAILY
     Route: 048
     Dates: start: 20170404
  2. COUMADIN [Concomitant]
     Active Substance: WARFARIN SODIUM
     Indication: INTERNATIONAL NORMALISED RATIO ABNORMAL
     Dosage: FROM 17 YEARS, UNK
     Route: 065
  3. RYTARY [Suspect]
     Active Substance: CARBIDOPA\LEVODOPA
     Dosage: 23.75/95 MG, ONE CAPSULE FOUR TIMES DAILY
     Route: 048
     Dates: start: 2017

REACTIONS (6)
  - Weight increased [Unknown]
  - Anxiety [Unknown]
  - Sciatica [Not Recovered/Not Resolved]
  - Peripheral coldness [Not Recovered/Not Resolved]
  - Tremor [Not Recovered/Not Resolved]
  - Headache [Not Recovered/Not Resolved]

NARRATIVE: CASE EVENT DATE: 2017
